FAERS Safety Report 11907660 (Version 1)
Quarter: 2016Q1

REPORT INFORMATION
  Report Type: Report from Study
  Country: US (occurrence: US)
  Receive Date: 20160111
  Receipt Date: 20160111
  Transmission Date: 20160526
  Serious: Yes (Hospitalization)
  Sender: FDA-Public Use
  Company Number: US-ABBVIE-15P-163-1526958-00

PATIENT
  Age: 77 Year
  Sex: Female

DRUGS (1)
  1. DUOPA [Suspect]
     Active Substance: CARBIDOPA\LEVODOPA
     Indication: PARKINSON^S DISEASE
     Dosage: 5ML/H
     Route: 050
     Dates: start: 20150616

REACTIONS (2)
  - Abdominal pain upper [Recovered/Resolved]
  - Stoma site infection [Recovering/Resolving]

NARRATIVE: CASE EVENT DATE: 20151218
